FAERS Safety Report 13932593 (Version 1)
Quarter: 2017Q3

REPORT INFORMATION
  Report Type: Report from Study
  Country: KR (occurrence: KR)
  Receive Date: 20170904
  Receipt Date: 20170904
  Transmission Date: 20171127
  Serious: Yes (Hospitalization)
  Sender: FDA-Public Use
  Company Number: KR-ROCHE-1985677

PATIENT
  Age: 53 Year
  Sex: Female
  Weight: 50.2 kg

DRUGS (32)
  1. ONSERAN [Concomitant]
     Route: 042
     Dates: start: 20160804, end: 20160804
  2. CORTISOLU [Concomitant]
     Active Substance: HYDROCORTISONE SODIUM SUCCINATE
     Route: 042
     Dates: start: 20160714, end: 20160714
  3. TRASTUZUMAB EMTANSINE [Suspect]
     Active Substance: ADO-TRASTUZUMAB EMTANSINE
     Indication: BREAST CANCER METASTATIC
     Route: 042
     Dates: start: 20160714
  4. ACETAMINOPHEN. [Concomitant]
     Active Substance: ACETAMINOPHEN
     Route: 048
     Dates: start: 20170822, end: 20170822
  5. TARGIN [Concomitant]
     Active Substance: NALOXONE HYDROCHLORIDE\OXYCODONE HYDROCHLORIDE
     Route: 048
     Dates: start: 20170801
  6. TARGIN [Concomitant]
     Active Substance: NALOXONE HYDROCHLORIDE\OXYCODONE HYDROCHLORIDE
     Route: 048
     Dates: start: 20151119
  7. BEAROBAN [Concomitant]
     Route: 065
     Dates: start: 20160713, end: 20160812
  8. GASTER (SOUTH KOREA) [Concomitant]
     Route: 042
     Dates: start: 20160714, end: 20160714
  9. ZOMETA [Concomitant]
     Active Substance: ZOLEDRONIC ACID
     Indication: HYPERCALCAEMIA
     Route: 042
     Dates: start: 20160714, end: 20160714
  10. ZOMETA [Concomitant]
     Active Substance: ZOLEDRONIC ACID
     Route: 042
     Dates: start: 20170801, end: 20170801
  11. PARAMACET [Concomitant]
     Active Substance: ACETAMINOPHEN\TRAMADOL
     Indication: PAIN IN EXTREMITY
     Route: 048
     Dates: start: 20160620, end: 20160717
  12. FREAMINE III NOS [Concomitant]
     Active Substance: AMINO ACIDS
     Route: 042
     Dates: start: 20170822, end: 20170822
  13. ONSERAN [Concomitant]
     Route: 042
     Dates: start: 20161101, end: 20161101
  14. STOGAR [Concomitant]
     Active Substance: LAFUTIDINE
     Route: 065
     Dates: start: 20141120
  15. ONSERAN [Concomitant]
     Route: 042
     Dates: start: 20160825, end: 20160825
  16. MEGACE F [Concomitant]
     Route: 065
     Dates: start: 20160212
  17. ONSERAN [Concomitant]
     Route: 042
     Dates: start: 20160920, end: 20160920
  18. FEROBA-YOU SR [Concomitant]
     Route: 048
     Dates: start: 20141127
  19. XANAX [Concomitant]
     Active Substance: ALPRAZOLAM
     Route: 048
     Dates: start: 20160411, end: 20160728
  20. CLANZA CR [Concomitant]
     Active Substance: ACECLOFENAC
     Indication: PAIN IN EXTREMITY
     Route: 048
     Dates: start: 20160715, end: 20160715
  21. GASTER (SOUTH KOREA) [Concomitant]
     Route: 042
     Dates: start: 20170822, end: 20170822
  22. PENIRAMIN [Concomitant]
     Route: 042
     Dates: start: 20170822, end: 20170822
  23. FREAMINE III NOS [Concomitant]
     Active Substance: AMINO ACIDS
     Route: 042
     Dates: start: 20170131, end: 20170131
  24. ONSERAN [Concomitant]
     Route: 042
     Dates: start: 20161122, end: 20161122
  25. ONSERAN [Concomitant]
     Route: 042
     Dates: start: 20170822, end: 20170822
  26. CORTISOLU [Concomitant]
     Active Substance: HYDROCORTISONE SODIUM SUCCINATE
     Route: 042
     Dates: start: 20170822, end: 20170822
  27. PENIRAMIN [Concomitant]
     Route: 042
     Dates: start: 20160714, end: 20160714
  28. ONSERAN [Concomitant]
     Indication: VOMITING
     Route: 042
     Dates: start: 20160714, end: 20160714
  29. ONSERAN [Concomitant]
     Route: 042
     Dates: start: 20161011, end: 20161011
  30. ACETAMINOPHEN. [Concomitant]
     Active Substance: ACETAMINOPHEN
     Route: 048
     Dates: start: 20160714, end: 20160714
  31. STILLEN [Concomitant]
     Route: 048
     Dates: start: 20160411, end: 20160728
  32. MELAX (MELOXICAM) [Concomitant]
     Route: 048
     Dates: start: 20160411, end: 20160717

REACTIONS (4)
  - Pyrexia [Recovered/Resolved]
  - Middle ear effusion [Recovered/Resolved]
  - Urticarial vasculitis [Recovered/Resolved]
  - Upper respiratory tract infection [Recovered/Resolved]

NARRATIVE: CASE EVENT DATE: 20160715
